FAERS Safety Report 5340689-6 (Version None)
Quarter: 2007Q2

REPORT INFORMATION
  Report Type: 
  Country: None (occurrence: None)
  Receive Date: 20070531
  Receipt Date: 20070524
  Transmission Date: 20071010
  Serious: Yes (Hospitalization)
  Sender: FDA-Public Use
  Company Number: DE-BOEHRINGER INGELHEIM PHARMACEUTICALS, INC.-2007-DE-03088DE

PATIENT
  Sex: Male

DRUGS (4)
  1. AGGRENOX [Suspect]
     Route: 048
  2. DECORTIN H [Concomitant]
     Dosage: 1-0-0
     Dates: end: 20070521
  3. DECORTIN H [Concomitant]
     Dosage: REDUCTION IN 5 TO 10 MG STEPS EVERY 7TH TO 14TH DAY
  4. ASPIRIN [Concomitant]
     Dosage: ADMINISTRATION INTERRUPTED

REACTIONS (5)
  - CHONDROCALCINOSIS PYROPHOSPHATE [None]
  - DIABETES MELLITUS [None]
  - IDIOPATHIC THROMBOCYTOPENIC PURPURA [None]
  - OEDEMA PERIPHERAL [None]
  - PAIN IN EXTREMITY [None]
